FAERS Safety Report 25539463 (Version 1)
Quarter: 2025Q3

REPORT INFORMATION
  Report Type: Spontaneous
  Country: US (occurrence: None)
  Receive Date: 20250710
  Receipt Date: 20250710
  Transmission Date: 20251021
  Serious: Yes (Hospitalization)
  Sender: FDA-CTU
  Company Number: None

PATIENT
  Age: 61 Year
  Sex: Male
  Weight: 61.5 kg

DRUGS (5)
  1. FLUOROURACIL [Suspect]
     Active Substance: FLUOROURACIL
     Dates: end: 20250705
  2. IRINOTECAN [Concomitant]
     Active Substance: IRINOTECAN
     Dates: end: 20250703
  3. LEUCOVORIN CALCIUM [Concomitant]
     Active Substance: LEUCOVORIN CALCIUM
     Dates: end: 20250703
  4. NIVOLUMAB [Concomitant]
     Active Substance: NIVOLUMAB
     Dates: end: 20250703
  5. ELOXATIN [Concomitant]
     Active Substance: OXALIPLATIN
     Dates: end: 20250117

REACTIONS (2)
  - Cancer pain [None]
  - Hypophagia [None]

NARRATIVE: CASE EVENT DATE: 20250707
